FAERS Safety Report 6502759-6 (Version None)
Quarter: 2009Q4

REPORT INFORMATION
  Report Type: 
  Country: None (occurrence: None)
  Receive Date: 20091127
  Receipt Date: 20090818
  Transmission Date: 20100525
  Serious: No
  Sender: FDA-Public Use
  Company Number: 001569

PATIENT
  Sex: Male

DRUGS (1)
  1. LACOSAMIDE [Suspect]
     Indication: CONVULSION
     Dates: start: 20090701

REACTIONS (3)
  - DELUSIONAL PERCEPTION [None]
  - HALLUCINATIONS, MIXED [None]
  - RESTLESSNESS [None]
